FAERS Safety Report 5933975-X (Version None)
Quarter: 2008Q4

REPORT INFORMATION
  Report Type: 
  Country: None (occurrence: None)
  Receive Date: 20081029
  Receipt Date: 20080929
  Transmission Date: 20090506
  Serious: Yes (Other)
  Sender: FDA-Public Use
  Company Number: JP-JNJFOC-20080603881

PATIENT
  Age: 26 Year
  Sex: Male

DRUGS (3)
  1. REMICADE [Suspect]
     Route: 042
  2. REMICADE [Suspect]
     Indication: CROHN'S DISEASE
     Route: 042
  3. IMURAN [Concomitant]
     Route: 048

REACTIONS (3)
  - CONJUNCTIVITIS [None]
  - HERPES ZOSTER OPHTHALMIC [None]
  - KAPOSI'S VARICELLIFORM ERUPTION [None]
